FAERS Safety Report 11419770 (Version 4)
Quarter: 2016Q1

REPORT INFORMATION
  Report Type: Spontaneous
  Country: FR (occurrence: FR)
  Receive Date: 20150826
  Receipt Date: 20160218
  Transmission Date: 20160525
  Serious: Yes (Disabling, Other)
  Sender: FDA-Public Use
  Company Number: FR-TEVA-587647ISR

PATIENT
  Sex: Female
  Weight: 68 kg

DRUGS (12)
  1. COPAXONE [Suspect]
     Active Substance: GLATIRAMER ACETATE
     Indication: MULTIPLE SCLEROSIS
     Dosage: 20 MILLIGRAM/MILLILITERS DAILY; COPAXONE 20 MG/ML STARTED 13 YEARS EARLIER
     Route: 058
     Dates: start: 2002
  2. AVLOCARDYL 40 MG [Concomitant]
  3. RIVOTRIL [Concomitant]
     Active Substance: CLONAZEPAM
     Indication: ANXIETY
  4. LEVOTHYROX 124 MCG [Concomitant]
     Indication: POST PROCEDURAL HYPOTHYROIDISM
     Dosage: IN THE MORNING
  5. ZOLOFT [Concomitant]
     Active Substance: SERTRALINE HYDROCHLORIDE
     Dosage: 50 MILLIGRAM DAILY; 25 MG IN THE MORNING AND 25 MG IN THE EVENING
  6. SMECTA [Concomitant]
     Active Substance: MONTMORILLONITE
  7. DOLIPRANE [Concomitant]
     Active Substance: ACETAMINOPHEN
  8. LYSANXIA 10 MG [Concomitant]
     Active Substance: PRAZEPAM
     Dosage: 30 MILLIGRAM DAILY;
  9. TERCIAN [Concomitant]
     Active Substance: CYAMEMAZINE
     Indication: ANXIETY
  10. NOCTAMIDE 2 MG [Concomitant]
     Dosage: .5 DOSAGE FORMS DAILY; IN THE EVENING
  11. METEOSPASMYL [Concomitant]
     Active Substance: ALVERINE CITRATE\DIMETHICONE
  12. INEXIUM [Concomitant]
     Active Substance: ESOMEPRAZOLE

REACTIONS (3)
  - Restlessness [Not Recovered/Not Resolved]
  - Injection site atrophy [Not Recovered/Not Resolved]
  - Injection site pain [Recovered/Resolved]
